FAERS Safety Report 5777616-3 (Version None)
Quarter: 2008Q2

REPORT INFORMATION
  Report Type: 
  Country: None (occurrence: None)
  Receive Date: 20080618
  Receipt Date: 20080616
  Transmission Date: 20081010
  Serious: Yes (Hospitalization)
  Sender: FDA-Public Use
  Company Number: NL-WYE-G01572408

PATIENT
  Age: 44 Year
  Sex: Male
  Weight: 80 kg

DRUGS (3)
  1. EFFEXOR XR [Suspect]
     Route: 048
     Dates: start: 20071201
  2. EFFEXOR XR [Suspect]
     Route: 048
  3. TRANXENE [Concomitant]
     Indication: ANXIETY

REACTIONS (6)
  - ANXIETY [None]
  - CONDITION AGGRAVATED [None]
  - DRUG WITHDRAWAL SYNDROME [None]
  - IMPULSE-CONTROL DISORDER [None]
  - INTENTIONAL DRUG MISUSE [None]
  - PSYCHIATRIC DECOMPENSATION [None]
